FAERS Safety Report 8477012-4 (Version None)
Quarter: 2012Q2

REPORT INFORMATION
  Report Type: 
  Country: None (occurrence: None)
  Receive Date: 20120629
  Receipt Date: 20120622
  Transmission Date: 20120825
  Serious: No
  Sender: FDA-Public Use
  Company Number: US-BIOGENIDEC-2012BI022342

PATIENT
  Sex: Female

DRUGS (1)
  1. AVONEX [Suspect]
     Indication: MULTIPLE SCLEROSIS
     Route: 030

REACTIONS (5)
  - HEPATIC CYST [None]
  - INJECTION SITE HAEMATOMA [None]
  - VAGINAL DISORDER [None]
  - CHROMATURIA [None]
  - ABDOMINAL DISTENSION [None]
